FAERS Safety Report 11857077 (Version 3)
Quarter: 2016Q1

REPORT INFORMATION
  Report Type: Spontaneous
  Country: US (occurrence: US)
  Receive Date: 20151221
  Receipt Date: 20160201
  Transmission Date: 20160526
  Serious: No
  Sender: FDA-Public Use
  Company Number: US-PFIZER INC-2015409092

PATIENT
  Age: 62 Year
  Sex: Female
  Weight: 81 kg

DRUGS (1)
  1. AMLODIPINE BESILATE [Suspect]
     Active Substance: AMLODIPINE BESYLATE
     Indication: HYPERTENSION
     Dosage: 5 MG, 1X/DAY
     Dates: start: 2000, end: 2000

REACTIONS (3)
  - Drug ineffective [Unknown]
  - Malaise [Unknown]
  - Pain [Unknown]
